FAERS Safety Report 14298369 (Version 2)
Quarter: 2018Q1

REPORT INFORMATION
  Report Type: Spontaneous
  Country: US (occurrence: US)
  Receive Date: 20171218
  Receipt Date: 20180104
  Transmission Date: 20180509
  Serious: Yes (Other)
  Sender: FDA-Public Use
  Company Number: PHEH2017US040334

PATIENT
  Age: 59 Year
  Sex: Male
  Weight: 109.21 kg

DRUGS (27)
  1. DEXAMETHASONE. [Concomitant]
     Active Substance: DEXAMETHASONE
     Indication: PRODUCT USED FOR UNKNOWN INDICATION
     Dosage: 1 DF, TID
     Route: 048
     Dates: start: 20160822
  2. DEXAMETHASONE. [Concomitant]
     Active Substance: DEXAMETHASONE
     Dosage: 1 DF, BID (QAM/QPM)
     Route: 065
     Dates: start: 20161028
  3. DEXAMETHASONE. [Concomitant]
     Active Substance: DEXAMETHASONE
     Dosage: 1 DF, BID
     Route: 048
     Dates: start: 20161128
  4. LEVETIRACETAM. [Concomitant]
     Active Substance: LEVETIRACETAM
     Indication: PRODUCT USED FOR UNKNOWN INDICATION
     Dosage: 1 DF, BID
     Route: 048
     Dates: start: 20160822
  5. NYSTATIN. [Concomitant]
     Active Substance: NYSTATIN
     Dosage: 5 OT, QID (SWISH AND RETAIN IN THE MOUTH AS LONG AS POSSIBLE, THEN SWALLOW)
     Route: 048
     Dates: start: 20161219
  6. NYSTATIN. [Concomitant]
     Active Substance: NYSTATIN
     Dosage: 5 OT, QID (SWISH AND RETAIN IN THE MOUTH AS LONG AS POSSIBLE, THEN SWALLOW)
     Route: 048
     Dates: start: 20171122
  7. DEXAMETHASONE. [Concomitant]
     Active Substance: DEXAMETHASONE
     Dosage: 1 DF, TID
     Route: 048
     Dates: start: 20171122
  8. LEVETIRACETAM. [Concomitant]
     Active Substance: LEVETIRACETAM
     Dosage: 1 DF, BID
     Route: 048
     Dates: start: 20161012
  9. LEVETIRACETAM. [Concomitant]
     Active Substance: LEVETIRACETAM
     Dosage: 1 DF, BID
     Route: 048
     Dates: start: 20171016
  10. NYSTATIN. [Concomitant]
     Active Substance: NYSTATIN
     Indication: PRODUCT USED FOR UNKNOWN INDICATION
     Dosage: 5 OT, QID (SWISH AND RETAIN IN THE MOUTH AS LONG AS POSSIBLE, THEN SWALLOW)
     Route: 048
     Dates: start: 20160826
  11. VOTRIENT [Suspect]
     Active Substance: PAZOPANIB HYDROCHLORIDE
     Indication: RENAL CELL CARCINOMA STAGE IV
  12. NYSTATIN. [Concomitant]
     Active Substance: NYSTATIN
     Dosage: 5 OT, QID (SWISH AND RETAIN IN THE MOUTH AS LONG AS POSSIBLE, THEN SWALLOW)
     Route: 048
     Dates: start: 20161010
  13. TRAMADOL. [Concomitant]
     Active Substance: TRAMADOL
     Indication: PRODUCT USED FOR UNKNOWN INDICATION
     Route: 065
  14. DECADRON [Concomitant]
     Active Substance: DEXAMETHASONE
     Indication: PRODUCT USED FOR UNKNOWN INDICATION
     Dosage: UNK
     Route: 065
  15. LEVAQUIN [Concomitant]
     Active Substance: LEVOFLOXACIN
     Indication: PRODUCT USED FOR UNKNOWN INDICATION
     Dosage: 1 DF, QD
     Route: 048
     Dates: start: 20161025
  16. LEVETIRACETAM. [Concomitant]
     Active Substance: LEVETIRACETAM
     Dosage: 1 DF, BID
     Route: 048
     Dates: start: 20161219
  17. LEVETIRACETAM. [Concomitant]
     Active Substance: LEVETIRACETAM
     Dosage: 1 DF, BID
     Route: 048
     Dates: start: 20170214
  18. DEXAMETHASONE. [Concomitant]
     Active Substance: DEXAMETHASONE
     Dosage: 1 DF, TID
     Route: 048
     Dates: start: 20171205
  19. GUAIFENESIN. [Concomitant]
     Active Substance: GUAIFENESIN
     Indication: PRODUCT USED FOR UNKNOWN INDICATION
     Dosage: 5 ML, (FOR EVERY 4 HOURS) PRN
     Route: 048
  20. NYSTATIN. [Concomitant]
     Active Substance: NYSTATIN
     Dosage: 5 OT, QID (SWISH AND RETAIN IN THE MOUTH AS LONG AS POSSIBLE, THEN SWALLOW)
     Route: 048
     Dates: start: 20170413
  21. SUMATRIPTAN. [Concomitant]
     Active Substance: SUMATRIPTAN
     Indication: PRODUCT USED FOR UNKNOWN INDICATION
     Dosage: UNK
     Route: 065
  22. VOTRIENT [Suspect]
     Active Substance: PAZOPANIB HYDROCHLORIDE
     Indication: RENAL CANCER
     Dosage: 4 DF, QD
     Route: 048
     Dates: start: 20171128, end: 20171201
  23. DEXILANT [Concomitant]
     Active Substance: DEXLANSOPRAZOLE
     Indication: PRODUCT USED FOR UNKNOWN INDICATION
     Dosage: 1 OT, QD
     Route: 048
  24. LEVETIRACETAM. [Concomitant]
     Active Substance: LEVETIRACETAM
     Dosage: 1 DF, BID
     Route: 048
     Dates: start: 20170316
  25. LEVETIRACETAM. [Concomitant]
     Active Substance: LEVETIRACETAM
     Dosage: 1 DF, BID
     Route: 048
     Dates: start: 20170419
  26. LEVETIRACETAM. [Concomitant]
     Active Substance: LEVETIRACETAM
     Dosage: 1 DF, BID
     Route: 048
     Dates: start: 20171205
  27. NYSTATIN. [Concomitant]
     Active Substance: NYSTATIN
     Dosage: 5 OT, QID (SWISH AND RETAIN IN THE MOUTH AS LONG AS POSSIBLE, THEN SWALLOW)
     Route: 048
     Dates: start: 20160913

REACTIONS (16)
  - Confusional state [Unknown]
  - Blood lactate dehydrogenase increased [Unknown]
  - Loss of consciousness [Unknown]
  - Headache [Not Recovered/Not Resolved]
  - Influenza [Unknown]
  - Dizziness [Unknown]
  - Somnolence [Unknown]
  - Blood glucose increased [Unknown]
  - Asthenia [Unknown]
  - Petit mal epilepsy [Unknown]
  - Brain oedema [Unknown]
  - Seizure [Not Recovered/Not Resolved]
  - Blood pressure systolic increased [Unknown]
  - Body mass index increased [Unknown]
  - Fall [Unknown]
  - Drug intolerance [Unknown]

NARRATIVE: CASE EVENT DATE: 20171128
